FAERS Safety Report 4736722-2 (Version None)
Quarter: 2005Q3

REPORT INFORMATION
  Report Type: 
  Country: None (occurrence: None)
  Receive Date: 20050808
  Receipt Date: 20050808
  Transmission Date: 20060218
  Serious: Yes (Hospitalization)
  Sender: FDA-Public Use
  Company Number: None

PATIENT
  Sex: Female

DRUGS (2)
  1. CRESTOR [Suspect]
     Indication: BLOOD CHOLESTEROL INCREASED
     Dosage: 500 MG Q DAY PO
     Route: 048
  2. CRESTOR [Suspect]
     Indication: HYPERLIPIDAEMIA
     Dosage: 500 MG Q DAY PO
     Route: 048

REACTIONS (3)
  - ACCIDENT [None]
  - HIP FRACTURE [None]
  - LIVER FUNCTION TEST ABNORMAL [None]
